FAERS Safety Report 7998449-3 (Version None)
Quarter: 2011Q4

REPORT INFORMATION
  Report Type: 
  Country: None (occurrence: None)
  Receive Date: 20111221
  Receipt Date: 20111109
  Transmission Date: 20120403
  Serious: No
  Sender: FDA-Public Use
  Company Number: US-GLAXOSMITHKLINE-A0952484A

PATIENT
  Age: 76 Year
  Sex: Male

DRUGS (6)
  1. ENALAPRIL MALEATE [Concomitant]
  2. LOVAZA [Suspect]
     Indication: PRODUCT USED FOR UNKNOWN INDICATION
     Dosage: 2CAP PER DAY
     Route: 048
     Dates: start: 20110817, end: 20111031
  3. INSULIN [Concomitant]
  4. PRAVACHOL [Concomitant]
  5. TOPROL-XL [Concomitant]
  6. COUMADIN [Concomitant]

REACTIONS (1)
  - CONSTIPATION [None]
